FAERS Safety Report 9189781 (Version 2)
Quarter: 2013Q2

REPORT INFORMATION
  Report Type: Spontaneous
  Country: US (occurrence: None)
  Receive Date: 20120703
  Receipt Date: 20121031
  Transmission Date: 20140414
  Serious: Yes (Other)
  Sender: FDA-Public Use
  Company Number: PHEH2012US008070

PATIENT
  Age: 63 Year
  Sex: Female
  Weight: 52.2 kg

DRUGS (8)
  1. GILENYA (FTY)CAPSULE, 0.5MG [Suspect]
     Indication: MULTIPLE SCLEROSIS
     Route: 048
     Dates: start: 20120411
  2. GILENYA (FTY)CAPSULE, 0.5MG [Suspect]
     Indication: RELAPSING-REMITTING MULTIPLE SCLEROSIS
     Route: 048
     Dates: start: 20120411
  3. VENLAFAXINE (VENLAFAXINE) [Concomitant]
  4. LEVOTHYROXINE (LEVOTHYROXINE) [Concomitant]
  5. CLONAZEPAM (CLONAZEPAM) (CLONAZEPAM) [Concomitant]
  6. PERCOCET (OXYCODONE HYDROCHLORIDE, PARACETAMOL) [Concomitant]
  7. LYRICA (PREGABALIN) [Concomitant]
  8. BACLOFEN (BACLOFEN) [Concomitant]

REACTIONS (5)
  - Somnolence [None]
  - Pleuritic pain [None]
  - Arthralgia [None]
  - Oropharyngeal pain [None]
  - Drug intolerance [None]
